APPROVED DRUG PRODUCT: METHYCLOTHIAZIDE AND DESERPIDINE
Active Ingredient: DESERPIDINE; METHYCLOTHIAZIDE
Strength: 0.25MG;5MG
Dosage Form/Route: TABLET;ORAL
Application: A088486 | Product #001
Applicant: WATSON LABORATORIES INC
Approved: Aug 10, 1984 | RLD: No | RS: No | Type: DISCN